FAERS Safety Report 8820494 (Version 1)
Quarter: 2012Q4

REPORT INFORMATION
  Report Type: 
  Country: US (occurrence: US)
  Receive Date: 20121002
  Receipt Date: 20121002
  Transmission Date: 20130627
  Serious: No
  Sender: FDA-Public Use
  Company Number: US-COVIDIEN/TYCO HEALTHCARE/MALLINCKRODT-T201202951

PATIENT
  Age: 82 Year
  Sex: Female

DRUGS (11)
  1. EXALGO EXTENDED RELEASE [Suspect]
     Indication: POST HERPETIC NEURALGIA
     Dosage: 16 mg, qd
     Route: 048
     Dates: start: 20120719, end: 20120727
  2. EXALGO EXTENDED RELEASE [Suspect]
     Indication: PAIN
  3. PERCOCET                           /00446701/ [Concomitant]
     Indication: PAIN
     Dosage: 10/325
  4. CENTRUM SILVER                     /01292501/ [Concomitant]
     Indication: VITAMIN SUPPLEMENTATION
     Dosage: UNK
  5. PREDNISONE [Concomitant]
     Indication: POST HERPETIC NEURALGIA
     Dosage: UNK
  6. FOIC ACID [Concomitant]
     Indication: VITAMIN SUPPLEMENTATION
     Dosage: UNK
  7. OXYCODONE [Concomitant]
     Indication: PAIN
     Dosage: 20 mg
     Dates: end: 20120718
  8. SIMVASTATIN [Concomitant]
     Indication: BLOOD CHOLESTEROL INCREASED
     Dosage: 40 mg, UNK
  9. TOPROL [Concomitant]
     Indication: HYPERTENSION
     Dosage: 50 mg, UNK
  10. ASPIRIN [Concomitant]
     Indication: PROPHYLAXIS
     Dosage: 81 mg, UNK
  11. LISINOPRIL [Concomitant]
     Indication: HYPERTENSION
     Dosage: UNK

REACTIONS (4)
  - Neck pain [Not Recovered/Not Resolved]
  - Arthralgia [Recovered/Resolved]
  - Nausea [Recovered/Resolved]
  - Asthenia [Recovered/Resolved]
